FAERS Safety Report 6306456-1 (Version None)
Quarter: 2009Q3

REPORT INFORMATION
  Report Type: 
  Country: None (occurrence: None)
  Receive Date: 20090812
  Receipt Date: 20090806
  Transmission Date: 20100115
  Serious: Yes (Other)
  Sender: FDA-Public Use
  Company Number: ES-ASTRAZENECA-2009SE07104

PATIENT
  Age: 66 Year
  Sex: Male

DRUGS (8)
  1. CASODEX [Suspect]
     Indication: PROSTATE CANCER
     Route: 048
     Dates: start: 20090225, end: 20090525
  2. DIAMICRON [Concomitant]
     Indication: DIABETES MELLITUS
     Route: 048
     Dates: start: 20061218
  3. LIPEMOL [Concomitant]
     Indication: ISCHAEMIC CARDIOMYOPATHY
     Route: 048
     Dates: start: 20050209
  4. OMEPRAZOL DAVUR [Concomitant]
     Dates: start: 20051007
  5. OMNIC OCAS [Concomitant]
     Indication: PROSTATE CANCER
     Route: 048
     Dates: start: 20081105
  6. TENORMIN [Concomitant]
     Indication: ISCHAEMIC CARDIOMYOPATHY
     Route: 048
     Dates: start: 20011204
  7. TROMALYT [Concomitant]
     Indication: ISCHAEMIC CARDIOMYOPATHY
     Route: 048
     Dates: start: 20040930
  8. VESICARE [Concomitant]
     Indication: PROSTATE CANCER
     Route: 048
     Dates: start: 20081105

REACTIONS (2)
  - ERYTHROPENIA [None]
  - LEUKOPENIA [None]
